FAERS Safety Report 24689366 (Version 1)
Quarter: 2024Q4

REPORT INFORMATION
  Report Type: Spontaneous
  Country: US (occurrence: US)
  Receive Date: 20241203
  Receipt Date: 20241203
  Transmission Date: 20250114
  Serious: Yes (Hospitalization)
  Sender: EPIC PHARM
  Company Number: US-EPICPHARMA-US-2024EPCLIT01497

PATIENT
  Age: 61 Year
  Sex: Female

DRUGS (1)
  1. CEFTRIAXONE SODIUM [Suspect]
     Active Substance: CEFTRIAXONE SODIUM
     Indication: Urinary tract infection
     Route: 065

REACTIONS (1)
  - Fixed eruption [Recovering/Resolving]
